FAERS Safety Report 8615647 (Version 2)
Quarter: 2016Q3

REPORT INFORMATION
  Report Type: Spontaneous
  Country: US (occurrence: US)
  Receive Date: 20120614
  Receipt Date: 20160831
  Transmission Date: 20161109
  Serious: Yes (Hospitalization)
  Sender: FDA-Public Use
  Company Number: US-AMGEN-USASP2012022923

PATIENT
  Age: 68 Year
  Sex: Female

DRUGS (1)
  1. PROLIA [Suspect]
     Active Substance: DENOSUMAB
     Indication: OSTEOPOROSIS
     Dosage: 60 MG, Q6MO
     Route: 058
     Dates: start: 20101013

REACTIONS (7)
  - Hypocalcaemia [Recovered/Resolved]
  - Pain [Unknown]
  - Productive cough [Unknown]
  - Chills [Unknown]
  - Pyrexia [Unknown]
  - Swelling [Unknown]
  - Tenderness [Unknown]
